FAERS Safety Report 5205963-2 (Version None)
Quarter: 2007Q1

REPORT INFORMATION
  Report Type: 
  Country: None (occurrence: None)
  Receive Date: 20070108
  Receipt Date: 20061218
  Transmission Date: 20070707
  Serious: Yes (Death, Hospitalization)
  Sender: FDA-Public Use
  Company Number: 6028315

PATIENT
  Age: 85 Year
  Sex: Female

DRUGS (10)
  1. BISOPROLOL FUMARATE [Suspect]
     Indication: DRUG USE FOR UNKNOWN INDICATION
     Dosage: 1 DOSAGE FORMS (1 DOSAGE FORMS, 1 D)
     Route: 048
  2. ACTRAPID (SOLUTION FOR INJECTION) (INSULIN HUMAN) [Suspect]
     Indication: DRUG USE FOR UNKNOWN INDICATION
     Dosage: SUBCUTANEOUS
     Route: 058
  3. FUROSEMIDE [Suspect]
     Indication: DRUG USE FOR UNKNOWN INDICATION
     Dosage: 40 MG (40 MG, 1 D) ORAL
     Route: 048
  4. LANTUS [Suspect]
     Indication: DRUG USE FOR UNKNOWN INDICATION
     Dosage: SUBCUTANEOUS
     Route: 058
  5. COVERSYL (TABLET) (PERINDOPRIL) [Suspect]
     Indication: DRUG USE FOR UNKNOWN INDICATION
     Dosage: 3 MG (3 MG, 1 D) ORAL
     Route: 048
  6. NOVONORM (TABLET) (REPAGLINIDE) [Suspect]
     Indication: DRUG USE FOR UNKNOWN INDICATION
     Dosage: 3 MG (3 MG, 1 D) ORAL
     Route: 048
  7. XANAX [Concomitant]
  8. NITRIDERM(TRANSDERMAL PATCH) (GLYCERYL TRINITRATE) [Concomitant]
  9. KARDEGIC (POWDER FOR ORAL SOLUTION) (ACETYLSALICYLATE LYSINE) [Concomitant]
  10. DIFFU K (CAPSULE) (POTASSIUM CHLORIDE) [Concomitant]

REACTIONS (4)
  - CARDIAC ARREST [None]
  - DEHYDRATION [None]
  - DIABETIC COMA [None]
  - GENERAL PHYSICAL HEALTH DETERIORATION [None]
